FAERS Safety Report 4891912-3 (Version None)
Quarter: 2006Q1

REPORT INFORMATION
  Report Type: 
  Country: None (occurrence: None)
  Receive Date: 20060123
  Receipt Date: 20060112
  Transmission Date: 20060701
  Serious: Yes (Hospitalization)
  Sender: FDA-Public Use
  Company Number: 2006008512

PATIENT
  Age: 39 Year

DRUGS (3)
  1. ZELDOX (CAPSULES) (ZIPRASIDONE) [Suspect]
     Indication: SCHIZOPHRENIA, PARANOID TYPE
     Dosage: ORAL
     Route: 048
     Dates: start: 20051130, end: 20051220
  2. TRUXAL (CHLORPROTHIXENE HYDROCHLORIDE) [Concomitant]
  3. CLONAZEPAM [Concomitant]

REACTIONS (3)
  - BLISTER [None]
  - MALAISE [None]
  - RASH SCARLATINIFORM [None]
